FAERS Safety Report 16224003 (Version 2)
Quarter: 2019Q2

REPORT INFORMATION
  Report Type: Report from Study
  Country: IT (occurrence: IT)
  Receive Date: 20190422
  Receipt Date: 20190425
  Transmission Date: 20190711
  Serious: Yes (Other)
  Sender: FDA-Public Use
  Company Number: IT-INCYTE CORPORATION-2018IN012514

PATIENT

DRUGS (14)
  1. VALPRESSION [Concomitant]
     Active Substance: VALSARTAN
     Indication: HYPERTENSION
     Dosage: 160 OT, UNK
     Route: 065
     Dates: end: 20180312
  2. CARDICOR [Concomitant]
     Active Substance: BISOPROLOL
     Dosage: UNK
     Route: 065
  3. JAKAVI [Suspect]
     Active Substance: RUXOLITINIB
     Indication: POLYCYTHAEMIA VERA
     Dosage: 20 OT, UNK
     Route: 048
     Dates: start: 20180519, end: 20180608
  4. JAKAVI [Suspect]
     Active Substance: RUXOLITINIB
     Dosage: 30 OT, UNK
     Route: 048
     Dates: start: 20180609, end: 20180622
  5. JAKAVI [Suspect]
     Active Substance: RUXOLITINIB
     Dosage: 40 OT, UNK
     Route: 048
     Dates: start: 20180623
  6. VESSEL                             /00393001/ [Concomitant]
     Indication: PRODUCT USED FOR UNKNOWN INDICATION
     Dosage: 250 OT, UNK
     Route: 065
     Dates: start: 20150718
  7. TOTALIP [Concomitant]
     Active Substance: ATORVASTATIN
     Dosage: UNK
     Route: 065
     Dates: end: 20181221
  8. NORVASC [Concomitant]
     Active Substance: AMLODIPINE BESYLATE
     Indication: HYPERTENSION
     Dosage: 10 OT, UNK
     Route: 065
     Dates: start: 20180313
  9. ACETYLSALICYLIC ACID [Concomitant]
     Active Substance: ASPIRIN
     Indication: PRODUCT USED FOR UNKNOWN INDICATION
     Dosage: 100 OT, UNK
     Route: 065
     Dates: end: 20181228
  10. TOTALIP [Concomitant]
     Active Substance: ATORVASTATIN
     Indication: HYPERCHOLESTEROLAEMIA
     Dosage: UNK
     Route: 065
     Dates: end: 20180426
  11. SERENASE                           /00027401/ [Concomitant]
     Active Substance: HALOPERIDOL
     Indication: PRODUCT USED FOR UNKNOWN INDICATION
     Dosage: 1 OT, UNK
     Route: 065
  12. CARDICOR [Concomitant]
     Active Substance: BISOPROLOL
     Indication: HYPERTENSION
     Dosage: UNK
     Route: 065
  13. ACICLOVIR [Concomitant]
     Active Substance: ACYCLOVIR
     Indication: ANTIVIRAL PROPHYLAXIS
     Dosage: 400 OT, UNK
     Route: 065
     Dates: start: 20180519
  14. ARMOLIPID PLUS [Concomitant]
     Active Substance: DIETARY SUPPLEMENT
     Indication: HYPERCHOLESTEROLAEMIA
     Dosage: UNK
     Route: 065
     Dates: start: 20181222

REACTIONS (20)
  - Osteoarthritis [Not Recovered/Not Resolved]
  - Bartholinitis [Unknown]
  - Gamma-glutamyltransferase increased [Unknown]
  - Blood glucose increased [Unknown]
  - Abdominal discomfort [Unknown]
  - Paraesthesia [Not Recovered/Not Resolved]
  - Dry mouth [Unknown]
  - Blood lactate dehydrogenase increased [Unknown]
  - Platelet count increased [Unknown]
  - Urobilinogen urine increased [Unknown]
  - Oedema peripheral [Recovering/Resolving]
  - Rectal haemorrhage [Recovered/Resolved]
  - Dysgeusia [Unknown]
  - Blood urea increased [Unknown]
  - Epistaxis [Unknown]
  - Genital haemorrhage [Recovered/Resolved]
  - Red cell distribution width increased [Unknown]
  - Erythromelalgia [Not Recovered/Not Resolved]
  - Red blood cell count decreased [Unknown]
  - Pain in extremity [Recovering/Resolving]

NARRATIVE: CASE EVENT DATE: 20180609
